FAERS Safety Report 7637648-7 (Version None)
Quarter: 2011Q3

REPORT INFORMATION
  Report Type: 
  Country: None (occurrence: None)
  Receive Date: 20110726
  Receipt Date: 20110725
  Transmission Date: 20111222
  Serious: Yes (Hospitalization)
  Sender: FDA-Public Use
  Company Number: US-MERCK-1107USA03024

PATIENT
  Age: 76 Year
  Sex: Male

DRUGS (4)
  1. ACTOS [Concomitant]
     Route: 065
  2. AMARYL [Suspect]
     Route: 048
  3. AMARYL [Suspect]
     Indication: TYPE 2 DIABETES MELLITUS
     Route: 048
     Dates: end: 20110608
  4. JANUVIA [Suspect]
     Route: 048

REACTIONS (1)
  - CARDIAC DISORDER [None]
